FAERS Safety Report 21965649 (Version 1)
Quarter: 2023Q1

REPORT INFORMATION
  Report Type: Spontaneous
  Country: CN (occurrence: CN)
  Receive Date: 20230208
  Receipt Date: 20230208
  Transmission Date: 20230417
  Serious: Yes (Other)
  Sender: FDA-Public Use
  Company Number: None

PATIENT
  Age: 3 Year
  Sex: Male
  Weight: 15.5 kg

DRUGS (12)
  1. CYCLOPHOSPHAMIDE [Suspect]
     Active Substance: CYCLOPHOSPHAMIDE
     Indication: Acute lymphocytic leukaemia
     Dosage: 660 MG, QD, DILUTED WITH 0.9% SODIUM CHLORIDE (250 ML), ROUTE: INTRA-PUMP INJECTION
     Route: 050
     Dates: start: 20230101, end: 20230101
  2. CYCLOPHOSPHAMIDE [Suspect]
     Active Substance: CYCLOPHOSPHAMIDE
     Indication: B-cell type acute leukaemia
  3. CYCLOPHOSPHAMIDE [Suspect]
     Active Substance: CYCLOPHOSPHAMIDE
     Indication: RUNX1 gene mutation
  4. SODIUM CHLORIDE [Suspect]
     Active Substance: SODIUM CHLORIDE
     Indication: Medication dilution
     Dosage: 250 ML, QD, USED TO DILUTE CYCLOPHOSPHAMIDE (660 MG), CONCENTRATION: 0.9%, DOSAGE FORM: INJECTION, R
     Route: 050
     Dates: start: 20230101, end: 20230101
  5. SODIUM CHLORIDE [Suspect]
     Active Substance: SODIUM CHLORIDE
     Dosage: 100 ML, ONCE IN 2 DAYS, USED TO DILUTE CYTARABINE HYDROCHLORIDE (33 MG), CONCENTRATION: 0.9%, DOSAGE
     Route: 050
     Dates: start: 20230101, end: 20230107
  6. SODIUM CHLORIDE [Suspect]
     Active Substance: SODIUM CHLORIDE
     Dosage: 90 ML, QD, USED TO DILUTE METHOTREXATE (10 MG) AND CYTARABINE HYDROCHLORIDE (35 MG), DOSAGE FORM: IN
     Route: 037
     Dates: start: 20230101, end: 20230101
  7. METHOTREXATE [Suspect]
     Active Substance: METHOTREXATE
     Indication: Acute lymphocytic leukaemia
     Dosage: 10 MG, QD, DILUTED WITH SODIUM CHLORIDE (90 ML) AND CYTARABINE HYDROCHLORIDE (35 MG)
     Route: 037
     Dates: start: 20230101, end: 20230101
  8. METHOTREXATE [Suspect]
     Active Substance: METHOTREXATE
     Indication: B-cell type acute leukaemia
  9. METHOTREXATE [Suspect]
     Active Substance: METHOTREXATE
     Indication: RUNX1 gene mutation
  10. CYTARABINE HYDROCHLORIDE [Suspect]
     Active Substance: CYTARABINE HYDROCHLORIDE
     Indication: Acute lymphocytic leukaemia
     Dosage: 33 MG, ONCE IN 2 DAYS, DILUTED WITH 0.9% SODIUM CHLORIDE (100 ML), ROUTE: INTRA-PUMP INJECTION
     Route: 050
     Dates: start: 20230101, end: 20230107
  11. CYTARABINE HYDROCHLORIDE [Suspect]
     Active Substance: CYTARABINE HYDROCHLORIDE
     Indication: B-cell type acute leukaemia
     Dosage: 35 MG, QD, DILUTED WITH SODIUM CHLORIDE (90 ML) AND METHOTREXATE (10 MG)
     Route: 037
     Dates: start: 20230101, end: 20230101
  12. CYTARABINE HYDROCHLORIDE [Suspect]
     Active Substance: CYTARABINE HYDROCHLORIDE
     Indication: RUNX1 gene mutation

REACTIONS (1)
  - Myelosuppression [Unknown]

NARRATIVE: CASE EVENT DATE: 20230111
